FAERS Safety Report 8110642-8 (Version None)
Quarter: 2012Q1

REPORT INFORMATION
  Report Type: 
  Country: None (occurrence: None)
  Receive Date: 20120203
  Receipt Date: 20120123
  Transmission Date: 20120608
  Serious: Yes (Other)
  Sender: FDA-Public Use
  Company Number: US-RB-033966-12

PATIENT
  Age: 81 Year
  Sex: Female

DRUGS (2)
  1. MUCINEX [Suspect]
     Dosage: TOOK THE DRUG FOR 3 WEEKS.
     Route: 048
     Dates: start: 20111201, end: 20120117
  2. MUCINEX [Suspect]
     Indication: RESPIRATORY TRACT CONGESTION
     Dosage: TOOK THE DRUG FOR 3 WEEKS.
     Route: 048
     Dates: start: 20111201, end: 20120117

REACTIONS (2)
  - EPISTAXIS [None]
  - INCORRECT DRUG ADMINISTRATION DURATION [None]
